FAERS Safety Report 8581626-0 (Version None)
Quarter: 2012Q3

REPORT INFORMATION
  Report Type: 
  Country: None (occurrence: None)
  Receive Date: 20120809
  Receipt Date: 20120803
  Transmission Date: 20120928
  Serious: Yes (Death, Hospitalization)
  Sender: FDA-Public Use
  Company Number: AU-PFIZER INC-2012189078

PATIENT
  Age: 85 Year
  Sex: Female

DRUGS (2)
  1. SIMVASTATIN [Interacting]
     Dosage: 20 MG, 1X/DAY
  2. VORICONAZOLE [Suspect]
     Dosage: 200 MG, 2X/DAY
     Route: 048

REACTIONS (2)
  - DRUG INTERACTION [None]
  - RHABDOMYOLYSIS [None]
